FAERS Safety Report 5479012-5 (Version None)
Quarter: 2007Q4

REPORT INFORMATION
  Report Type: 
  Country: None (occurrence: None)
  Receive Date: 20071006
  Receipt Date: 20070925
  Transmission Date: 20080405
  Serious: Yes (Hospitalization, Other)
  Sender: FDA-Public Use
  Company Number: US-PFIZER INC-2007080441

PATIENT
  Sex: Female
  Weight: 118.18 kg

DRUGS (10)
  1. LYRICA [Suspect]
     Indication: NEURALGIA
  2. HYDROCHLOROTHIAZIDE [Suspect]
     Indication: OEDEMA
  3. HYDROCHLOROTHIAZIDE [Suspect]
     Indication: CARDIAC FAILURE CONGESTIVE
  4. KLONOPIN [Concomitant]
  5. NAPROSYN [Concomitant]
  6. LAMICTAL [Concomitant]
  7. TRAZODONE HCL [Concomitant]
  8. PAXIL [Concomitant]
  9. REQUIP [Concomitant]
  10. TIZANIDINE HCL [Concomitant]

REACTIONS (9)
  - BLOOD SODIUM DECREASED [None]
  - BLOOD URINE PRESENT [None]
  - DISTURBANCE IN ATTENTION [None]
  - DRY MOUTH [None]
  - DYSURIA [None]
  - MEMORY IMPAIRMENT [None]
  - OEDEMA PERIPHERAL [None]
  - SOMNOLENCE [None]
  - WEIGHT DECREASED [None]
